FAERS Safety Report 4297642-3 (Version None)
Quarter: 2004Q1

REPORT INFORMATION
  Report Type: 
  Country: None (occurrence: None)
  Receive Date: 20040217
  Receipt Date: 20040217
  Transmission Date: 20041129
  Serious: Yes (Death)
  Sender: FDA-Public Use
  Company Number: None

PATIENT
  Sex: Male
  Weight: 73.0291 kg

DRUGS (2)
  1. REMICADE [Suspect]
     Indication: CROHN'S DISEASE
     Dosage: 350MG ONCE INTRAVENOUS
     Route: 042
     Dates: start: 20040119, end: 20040119
  2. STEROIDS [Concomitant]

REACTIONS (2)
  - MYALGIA [None]
  - SEPSIS [None]
